FAERS Safety Report 5218465-4 (Version None)
Quarter: 2007Q1

REPORT INFORMATION
  Report Type: 
  Country: None (occurrence: None)
  Receive Date: 20070123
  Receipt Date: 20070123
  Transmission Date: 20070707
  Serious: Yes (Other)
  Sender: FDA-Public Use
  Company Number: None

PATIENT
  Sex: Female

DRUGS (1)
  1. SODIUM CHLORIDE [Suspect]
     Indication: POLYP
     Dosage: 10 ML AS NEEDED SUBCUT
     Route: 058
     Dates: start: 20070116

REACTIONS (1)
  - INJECTION SITE INDURATION [None]
